FAERS Safety Report 7738236-4 (Version None)
Quarter: 2011Q3

REPORT INFORMATION
  Report Type: 
  Country: None (occurrence: None)
  Receive Date: 20110908
  Receipt Date: 20110907
  Transmission Date: 20111222
  Serious: Yes (Other)
  Sender: FDA-Public Use
  Company Number: IT-PFIZER INC-2010083375

PATIENT
  Age: 41 Year
  Sex: Male

DRUGS (1)
  1. ZITHROMAX [Suspect]
     Indication: BRONCHITIS
     Dosage: 1 DOSAGE UNIT, DAILY
     Route: 048
     Dates: start: 20100110, end: 20100521

REACTIONS (2)
  - ABDOMINAL PAIN UPPER [None]
  - DYSENTERY [None]
